FAERS Safety Report 6048126-3 (Version None)
Quarter: 2009Q1

REPORT INFORMATION
  Report Type: 
  Country: None (occurrence: None)
  Receive Date: 20090123
  Receipt Date: 20090115
  Transmission Date: 20090719
  Serious: Yes (Other)
  Sender: FDA-Public Use
  Company Number: CA-PFIZER INC-2008156660

PATIENT

DRUGS (4)
  1. CELEBREX [Suspect]
     Indication: INTERVERTEBRAL DISC PROTRUSION
     Dosage: UNK
  2. CELEBREX [Suspect]
     Indication: PAIN
  3. DOCUSATE SODIUM [Concomitant]
     Dosage: UNK
  4. CARDIOVASCULAR SYSTEM DRUGS [Concomitant]
     Dosage: UNK

REACTIONS (1)
  - GASTROINTESTINAL ULCER [None]
